FAERS Safety Report 7853377-9 (Version None)
Quarter: 2011Q4

REPORT INFORMATION
  Report Type: 
  Country: None (occurrence: None)
  Receive Date: 20111026
  Receipt Date: 20111019
  Transmission Date: 20120403
  Serious: Yes (Hospitalization)
  Sender: FDA-Public Use
  Company Number: RU-SANOFI-AVENTIS-2011SA057830

PATIENT
  Age: 65 Year
  Sex: Female

DRUGS (2)
  1. PLAVIX [Suspect]
     Indication: THROMBOSIS PROPHYLAXIS
     Route: 048
     Dates: start: 20101001
  2. ASPIRIN [Concomitant]
     Indication: THROMBOSIS PROPHYLAXIS
     Route: 048

REACTIONS (7)
  - GASTRITIS EROSIVE [None]
  - INCORRECT DRUG ADMINISTRATION DURATION [None]
  - ASTHENIA [None]
  - FAECES DISCOLOURED [None]
  - ANAEMIA [None]
  - CHEST PAIN [None]
  - PALLOR [None]
